FAERS Safety Report 5112478-9 (Version None)
Quarter: 2006Q3

REPORT INFORMATION
  Report Type: 
  Country: None (occurrence: None)
  Receive Date: 20060922
  Receipt Date: 20060629
  Transmission Date: 20061208
  Serious: No
  Sender: FDA-Public Use
  Company Number: US-BRISTOL-MYERS SQUIBB COMPANY-13428131

PATIENT
  Age: 89 Year
  Sex: Female

DRUGS (7)
  1. MEGACE [Suspect]
     Indication: INCREASED APPETITE
     Route: 048
  2. ENBREL [Concomitant]
  3. FOSAMAX [Concomitant]
  4. DETROL [Concomitant]
  5. NEXIUM [Concomitant]
  6. IRON PREPARATION [Concomitant]
  7. VITAMINS [Concomitant]

REACTIONS (2)
  - AMNESIA [None]
  - CONFUSIONAL STATE [None]
